FAERS Safety Report 11005138 (Version 1)
Quarter: 2015Q2

REPORT INFORMATION
  Report Type: Spontaneous
  Country: US (occurrence: US)
  Receive Date: 20150409
  Receipt Date: 20150409
  Transmission Date: 20150821
  Serious: Yes (Hospitalization, Congenital Anomaly, Other)
  Sender: FDA-Public Use
  Company Number: US-GLAXOSMITHKLINE-US2015GSK045501

PATIENT
  Sex: Female

DRUGS (1)
  1. ZOFRAN [Suspect]
     Active Substance: ONDANSETRON HYDROCHLORIDE
     Indication: VOMITING IN PREGNANCY
     Dosage: UNK, U
     Route: 064

REACTIONS (19)
  - Hydrops foetalis [Unknown]
  - Foetal exposure during pregnancy [Unknown]
  - Pulmonary hypertension [Unknown]
  - Low birth weight baby [Unknown]
  - Jaundice neonatal [Unknown]
  - Congenital gastric anomaly [Unknown]
  - Endotracheal intubation [Unknown]
  - Dystonia [Unknown]
  - Premature delivery [Unknown]
  - Patent ductus arteriosus [Unknown]
  - Foetal heart rate decreased [Unknown]
  - Hernia congenital [Unknown]
  - Cerebrovascular accident [Unknown]
  - Off label use [Unknown]
  - Mechanical ventilation [Unknown]
  - Atrial septal defect [Unknown]
  - Craniosynostosis [Unknown]
  - Thrombosis [Unknown]
  - Sepsis [Unknown]
